FAERS Safety Report 12485464 (Version 1)
Quarter: 2016Q2

REPORT INFORMATION
  Report Type: Spontaneous
  Country: US (occurrence: US)
  Receive Date: 20160621
  Receipt Date: 20160621
  Transmission Date: 20160815
  Serious: No
  Sender: FDA-Public Use
  Company Number: US-SA-2015SA206843

PATIENT
  Age: 50 Year
  Sex: Female
  Weight: 225 kg

DRUGS (3)
  1. CEREZYME [Suspect]
     Active Substance: IMIGLUCERASE
     Dosage: DOSE:30 UNIT(S)/KILOGRAM BODYWEIGHT
     Route: 041
     Dates: start: 2011
  2. CEREZYME [Suspect]
     Active Substance: IMIGLUCERASE
     Dosage: DOSE: 2400 - 2800 MG/ INFUSION
     Route: 041
  3. CEREZYME [Suspect]
     Active Substance: IMIGLUCERASE
     Dosage: DOSE: 4600
     Route: 041

REACTIONS (1)
  - Weight increased [Unknown]
